FAERS Safety Report 25060776 (Version 1)
Quarter: 2025Q1

REPORT INFORMATION
  Report Type: Report from Study
  Country: US (occurrence: US)
  Receive Date: 20250310
  Receipt Date: 20250310
  Transmission Date: 20250408
  Serious: Yes (Other)
  Sender: ABBVIE
  Company Number: US-ABBVIE-6169207

PATIENT
  Age: 68 Year
  Sex: Female

DRUGS (1)
  1. CREON [Suspect]
     Active Substance: PANCRELIPASE AMYLASE\PANCRELIPASE LIPASE\PANCRELIPASE PROTEASE
     Indication: Product used for unknown indication
     Route: 048
     Dates: start: 202402

REACTIONS (7)
  - Renal failure [Not Recovered/Not Resolved]
  - Ligament sprain [Unknown]
  - Renal disorder [Not Recovered/Not Resolved]
  - Fall [Unknown]
  - Fall [Recovered/Resolved]
  - Head injury [Unknown]
  - Cerebral haemorrhage [Unknown]

NARRATIVE: CASE EVENT DATE: 20241101
